FAERS Safety Report 4423325-2 (Version None)
Quarter: 2004Q3

REPORT INFORMATION
  Report Type: 
  Country: None (occurrence: None)
  Receive Date: 20040811
  Receipt Date: 20040805
  Transmission Date: 20050211
  Serious: Yes (Life-Threatening)
  Sender: FDA-Public Use
  Company Number: US-BRISTOL-MYERS SQUIBB COMPANY-12662367

PATIENT
  Age: 40 Year
  Sex: Male
  Weight: 85 kg

DRUGS (14)
  1. SUSTIVA [Suspect]
     Indication: HIV INFECTION
     Route: 048
     Dates: start: 20040128
  2. KALETRA [Suspect]
     Indication: HIV INFECTION
     Route: 048
     Dates: start: 20040128
  3. VALIUM [Concomitant]
  4. PERCOCET [Concomitant]
  5. VICODIN [Concomitant]
  6. NEXIUM [Concomitant]
  7. MARINOL [Concomitant]
  8. AMITRIPTYLINE HCL [Concomitant]
  9. SUDAFED S.A. [Concomitant]
  10. MULTI-VITAMIN [Concomitant]
  11. ALBUTEROL [Concomitant]
  12. COMBIVENT [Concomitant]
  13. FLONASE [Concomitant]
  14. PROTOPIC [Concomitant]
     Dosage: CREAM

REACTIONS (1)
  - LOW DENSITY LIPOPROTEIN INCREASED [None]
